FAERS Safety Report 24105384 (Version 2)
Quarter: 2024Q3

REPORT INFORMATION
  Report Type: Spontaneous
  Country: FR (occurrence: FR)
  Receive Date: 20240717
  Receipt Date: 20240910
  Transmission Date: 20241016
  Serious: Yes (Other)
  Sender: SANOFI AVENTIS
  Company Number: None

PATIENT
  Age: 77 Year
  Sex: Male
  Weight: 74 kg

DRUGS (2)
  1. SARCLISA [Suspect]
     Active Substance: ISATUXIMAB-IRFC
     Indication: Plasma cell myeloma
     Dosage: UNK
     Route: 042
     Dates: start: 20220822, end: 20240102
  2. POMALIDOMIDE [Suspect]
     Active Substance: POMALIDOMIDE
     Indication: Plasma cell myeloma
     Dosage: 1 DF, QD;CYCLE OF 21 DAYS
     Route: 048
     Dates: start: 20220822, end: 20240102

REACTIONS (1)
  - Alveolar lung disease [Recovering/Resolving]

NARRATIVE: CASE EVENT DATE: 20240125
